FAERS Safety Report 10359159 (Version 1)
Quarter: 2014Q3

REPORT INFORMATION
  Report Type: Spontaneous
  Country: US (occurrence: None)
  Receive Date: 20140731
  Receipt Date: 20140731
  Transmission Date: 20150326
  Serious: Yes (Hospitalization)
  Sender: FDA-Public Use
  Company Number: None

PATIENT
  Age: 98 Year
  Sex: Male
  Weight: 80.7 kg

DRUGS (18)
  1. XARELTO [Concomitant]
     Active Substance: RIVAROXABAN
  2. AMBIEN [Concomitant]
     Active Substance: ZOLPIDEM TARTRATE
  3. DONEPEZIL [Concomitant]
     Active Substance: DONEPEZIL
  4. RIVAROXABAN [Suspect]
     Active Substance: RIVAROXABAN
     Indication: ATRIAL FIBRILLATION
     Route: 048
  5. SYMBICORT [Concomitant]
     Active Substance: BUDESONIDE\FORMOTEROL FUMARATE DIHYDRATE
  6. LIPITOR [Concomitant]
     Active Substance: ATORVASTATIN CALCIUM
  7. OMEPRAZOLE. [Concomitant]
     Active Substance: OMEPRAZOLE
  8. FERROUS SULFATE [Concomitant]
     Active Substance: FERROUS SULFATE\FERROUS SULFATE, DRIED
  9. MELATONIN [Concomitant]
     Active Substance: MELATONIN
  10. ASA [Concomitant]
     Active Substance: ASPIRIN
  11. TOPROL XL [Concomitant]
     Active Substance: METOPROLOL SUCCINATE
  12. ERYTHROMYCIN. [Concomitant]
     Active Substance: ERYTHROMYCIN
  13. RIVAROXABAN [Suspect]
     Active Substance: RIVAROXABAN
     Indication: TRANSIENT ISCHAEMIC ATTACK
     Route: 048
  14. DILTIAZEM [Concomitant]
     Active Substance: DILTIAZEM
  15. XARELTO [Suspect]
     Active Substance: RIVAROXABAN
     Route: 048
  16. DUONEBS [Concomitant]
  17. ZOFRAN [Concomitant]
     Active Substance: ONDANSETRON HYDROCHLORIDE
  18. ALLOPURINOL. [Concomitant]
     Active Substance: ALLOPURINOL

REACTIONS (6)
  - Abdominal pain lower [None]
  - Lower gastrointestinal haemorrhage [None]
  - Nausea [None]
  - Occult blood positive [None]
  - Melaena [None]
  - Blood creatinine increased [None]

NARRATIVE: CASE EVENT DATE: 20140729
